FAERS Safety Report 7782553-9 (Version None)
Quarter: 2011Q3

REPORT INFORMATION
  Report Type: 
  Country: None (occurrence: None)
  Receive Date: 20110928
  Receipt Date: 20110916
  Transmission Date: 20111222
  Serious: Yes (Hospitalization)
  Sender: FDA-Public Use
  Company Number: US-ELI_LILLY_AND_COMPANY-US201109005924

PATIENT
  Sex: Female

DRUGS (1)
  1. HUMATROPE [Suspect]
     Indication: GROWTH HORMONE DEFICIENCY
     Dosage: 0.2 MG, QD
     Dates: start: 20091101

REACTIONS (5)
  - ADRENAL DISORDER [None]
  - CUSHING'S SYNDROME [None]
  - KERATECTOMY [None]
  - ARTHROSCOPY [None]
  - ANORECTAL OPERATION [None]
